FAERS Safety Report 6518967-4 (Version None)
Quarter: 2009Q4

REPORT INFORMATION
  Report Type: 
  Country: None (occurrence: None)
  Receive Date: 20091228
  Receipt Date: 20091218
  Transmission Date: 20100525
  Serious: Yes (Other)
  Sender: FDA-Public Use
  Company Number: US-BAYER-200917755BCC

PATIENT
  Age: 91 Year
  Sex: Female
  Weight: 104 kg

DRUGS (4)
  1. ALEVE [Suspect]
     Indication: ARTHRALGIA
     Dosage: TOTAL DAILY DOSE: 440 MG  UNIT DOSE: 220 MG
     Route: 048
     Dates: start: 20091217
  2. UNKNOWN PRESCRIPTION FOR HIGH BLOOD PRESSURE [Concomitant]
     Indication: HYPERTENSION
     Route: 065
  3. UNKNOWN PRESCRIPTION OF VITAMIN D [Concomitant]
     Route: 065
  4. VIOXX [Concomitant]
     Route: 065

REACTIONS (1)
  - HALLUCINATION [None]
